FAERS Safety Report 16074054 (Version 1)
Quarter: 2019Q1

REPORT INFORMATION
  Report Type: Spontaneous
  Country: SE (occurrence: SE)
  Receive Date: 20190314
  Receipt Date: 20190314
  Transmission Date: 20190418
  Serious: Yes (Other)
  Sender: FDA-Public Use
  Company Number: SE-TEVA-2019-SE-1023690

PATIENT
  Sex: Female
  Weight: 100 kg

DRUGS (3)
  1. BRICANYL [Concomitant]
     Active Substance: TERBUTALINE SULFATE
     Dates: start: 1998
  2. PULMICORT TURBUHALER [Concomitant]
     Active Substance: BUDESONIDE
     Dates: start: 1998
  3. VENLAFAXINE [Suspect]
     Active Substance: VENLAFAXINE HYDROCHLORIDE
     Indication: POST-TRAUMATIC STRESS DISORDER
     Dosage: 150 MG / DAY TREATMENT TIME} 3 YEARS
     Dates: start: 20150130

REACTIONS (9)
  - Headache [Recovered/Resolved]
  - Drug dependence [Recovered/Resolved]
  - Feeling cold [Recovered/Resolved]
  - Vomiting [Recovered/Resolved]
  - Nausea [Recovered/Resolved]
  - Derealisation [Recovered/Resolved]
  - Withdrawal syndrome [Recovered/Resolved]
  - Tremor [Recovered/Resolved]
  - Dizziness [Recovered/Resolved]
